FAERS Safety Report 13171225 (Version 6)
Quarter: 2019Q1

REPORT INFORMATION
  Report Type: Report from Study
  Country: CA (occurrence: CA)
  Receive Date: 20170201
  Receipt Date: 20190328
  Transmission Date: 20190417
  Serious: Yes (Hospitalization, Other)
  Sender: FDA-Public Use
  Company Number: PHHY2016CA153856

PATIENT
  Age: 69 Year
  Sex: Male

DRUGS (3)
  1. EXJADE [Suspect]
     Active Substance: DEFERASIROX
     Indication: ANAEMIA
     Route: 048
     Dates: end: 20161031
  2. JADENU [Suspect]
     Active Substance: DEFERASIROX
     Indication: ANAEMIA
     Dosage: 1080 MG, QD (3 PILLS OF 360 MG)
     Route: 048
  3. JADENU [Suspect]
     Active Substance: DEFERASIROX
     Dosage: 720 MG, QD
     Route: 048
     Dates: start: 201611

REACTIONS (20)
  - Haemoglobin increased [Unknown]
  - Cough [Unknown]
  - Abdominal discomfort [Unknown]
  - Fatigue [Unknown]
  - Anxiety [Unknown]
  - Gastrointestinal disorder [Unknown]
  - Urine odour abnormal [Recovering/Resolving]
  - Cardiovascular disorder [Unknown]
  - Dizziness [Unknown]
  - Cardiac failure congestive [Unknown]
  - Faeces discoloured [Unknown]
  - Peripheral swelling [Unknown]
  - Atrial fibrillation [Unknown]
  - Pain in extremity [Unknown]
  - Constipation [Unknown]
  - Serum ferritin increased [Unknown]
  - Insomnia [Unknown]
  - Blood iron decreased [Unknown]
  - Dysuria [Recovering/Resolving]
  - Pollakiuria [Unknown]

NARRATIVE: CASE EVENT DATE: 20161205
